FAERS Safety Report 10587280 (Version 1)
Quarter: 2014Q4

REPORT INFORMATION
  Report Type: Report from Study
  Country: GB (occurrence: GB)
  Receive Date: 20141117
  Receipt Date: 20141117
  Transmission Date: 20150529
  Serious: Yes (Hospitalization, Other)
  Sender: FDA-Public Use
  Company Number: GB-JNJFOC-20141103781

PATIENT
  Sex: Female

DRUGS (1)
  1. STELARA [Suspect]
     Active Substance: USTEKINUMAB
     Indication: PSORIASIS
     Route: 058
     Dates: start: 20130823

REACTIONS (2)
  - Hospitalisation [Recovered/Resolved]
  - Sepsis [Unknown]

NARRATIVE: CASE EVENT DATE: 2014
